FAERS Safety Report 6039478-9 (Version None)
Quarter: 2009Q1

REPORT INFORMATION
  Report Type: 
  Country: None (occurrence: None)
  Receive Date: 20090114
  Receipt Date: 20090114
  Transmission Date: 20090719
  Serious: Yes (Hospitalization, Other)
  Sender: FDA-Public Use
  Company Number: DSU-2009-00005

PATIENT
  Age: 73 Year
  Sex: Male
  Weight: 74.7 kg

DRUGS (6)
  1. CS-8663 (OLMESARTAN MEDOXOMIL) [Suspect]
     Indication: HYPERTENSION
     Dosage: 10/40/12.5 MG (QD), PER ORAL
     Route: 048
     Dates: start: 20081204, end: 20081221
  2. MEMANTINA  (MEMAMTINE HYDROCHLORIDE) [Concomitant]
  3. METFORMIN [Concomitant]
  4. PLAVIX [Concomitant]
  5. MULTI-VITAMINS [Concomitant]
  6. METHOTREXATE [Concomitant]

REACTIONS (3)
  - HYPERKALAEMIA [None]
  - PRESYNCOPE [None]
  - SYNCOPE [None]
